FAERS Safety Report 6051808-0 (Version None)
Quarter: 2009Q1

REPORT INFORMATION
  Report Type: 
  Country: None (occurrence: None)
  Receive Date: 20090126
  Receipt Date: 20090115
  Transmission Date: 20090719
  Serious: Yes (Death)
  Sender: FDA-Public Use
  Company Number: US-PFIZER INC-2008159217

PATIENT
  Sex: Male

DRUGS (3)
  1. LYRICA [Suspect]
  2. ZOLOFT [Suspect]
  3. DETROL LA [Suspect]

REACTIONS (1)
  - DEATH [None]
